FAERS Safety Report 16287801 (Version 5)
Quarter: 2020Q2

REPORT INFORMATION
  Report Type: Spontaneous
  Country: IT (occurrence: IT)
  Receive Date: 20190508
  Receipt Date: 20200609
  Transmission Date: 20200713
  Serious: Yes (Other)
  Sender: FDA-Public Use
  Company Number: PHHY2019IT087583

PATIENT
  Age: 22 Year
  Sex: Male

DRUGS (9)
  1. ARIPIPRAZOLE. [Suspect]
     Active Substance: ARIPIPRAZOLE
     Indication: MANIA
     Dosage: 30 MG, QD (DAY 2)
     Route: 048
  2. LANSOPRAZOLE. [Suspect]
     Active Substance: LANSOPRAZOLE
     Indication: MANIA
  3. DELORAZEPAM [Concomitant]
     Active Substance: DELORAZEPAM
     Indication: BIPOLAR I DISORDER
  4. ARIPIPRAZOLE. [Suspect]
     Active Substance: ARIPIPRAZOLE
     Indication: BIPOLAR I DISORDER
     Dosage: 14.6 MG, ON DAY 1; INJECTION
     Route: 030
  5. ARIPIPRAZOLE. [Suspect]
     Active Substance: ARIPIPRAZOLE
     Dosage: 1.5 MG, QD
     Route: 048
  6. DELORAZEPAM [Concomitant]
     Active Substance: DELORAZEPAM
     Indication: MANIA
  7. DELORAZEPAM [Concomitant]
     Active Substance: DELORAZEPAM
     Indication: BIPOLAR I DISORDER
     Dosage: 3 MG, QD (DAY 1)
     Route: 030
  8. LANSOPRAZOLE. [Suspect]
     Active Substance: LANSOPRAZOLE
     Indication: BIPOLAR I DISORDER
     Dosage: 15 MILLIGRAM, DAILY
     Route: 065
  9. DELORAZEPAM [Concomitant]
     Active Substance: DELORAZEPAM
     Indication: PSYCHOTIC SYMPTOM
     Dosage: 1.5 MG, QD (DAY 2)
     Route: 048

REACTIONS (3)
  - Hiccups [Recovered/Resolved]
  - Off label use [Unknown]
  - Prescribed underdose [Unknown]
